FAERS Safety Report 7396806-X (Version None)
Quarter: 2011Q1

REPORT INFORMATION
  Report Type: 
  Country: None (occurrence: None)
  Receive Date: 20110328
  Receipt Date: 20110311
  Transmission Date: 20110831
  Serious: Yes (Other)
  Sender: FDA-Public Use
  Company Number: 1000017849

PATIENT
  Age: 26 Year
  Sex: Female
  Weight: 109 kg

DRUGS (1)
  1. DINOPROSTONE (DINOPROSTONE)(VAGINAL INSERT) [Suspect]
     Indication: LABOUR INDUCTION
     Dosage: (10 MG,ONCE), VAGINAL
     Route: 067
     Dates: start: 20100909, end: 20100909

REACTIONS (4)
  - NAUSEA [None]
  - DRUG EXPOSURE DURING PREGNANCY [None]
  - UTERINE HYPERTONUS [None]
  - DIZZINESS [None]
